FAERS Safety Report 4638220-3 (Version None)
Quarter: 2005Q2

REPORT INFORMATION
  Report Type: 
  Country: None (occurrence: None)
  Receive Date: 20050415
  Receipt Date: 20050405
  Transmission Date: 20051028
  Serious: Yes (Other)
  Sender: FDA-Public Use
  Company Number: 2005054801

PATIENT
  Age: 17 Year
  Sex: Female
  Weight: 46.2669 kg

DRUGS (1)
  1. BENADRYL [Suspect]
     Indication: HYPERSENSITIVITY
     Dosage: 4 TSP ONCE, ORAL
     Route: 048
     Dates: start: 20050402, end: 20050402

REACTIONS (2)
  - DYSTONIA [None]
  - MUSCLE TWITCHING [None]
